FAERS Safety Report 9809209 (Version 2)
Quarter: 2014Q1

REPORT INFORMATION
  Report Type: Spontaneous
  Country: US (occurrence: US)
  Receive Date: 20140110
  Receipt Date: 20140110
  Transmission Date: 20141002
  Serious: No
  Sender: FDA-Public Use
  Company Number: US-MALLINCKRODT-T201302796

PATIENT
  Sex: Female

DRUGS (1)
  1. OPTIRAY [Suspect]
     Indication: UROGRAM
     Dosage: 100 ML, SINGLE
     Dates: start: 20130531, end: 20130531

REACTIONS (2)
  - Eye pruritus [Recovered/Resolved]
  - Sneezing [Recovered/Resolved]
